FAERS Safety Report 4700421-3 (Version None)
Quarter: 2005Q2

REPORT INFORMATION
  Report Type: 
  Country: None (occurrence: None)
  Receive Date: 20050207
  Receipt Date: 20050207
  Transmission Date: 20051028
  Serious: No
  Sender: FDA-Public Use
  Company Number: None

PATIENT
  Age: 43 Year
  Sex: Male

DRUGS (1)
  1. PROTONIX [Suspect]
     Indication: GASTROOESOPHAGEAL REFLUX DISEASE
     Dosage: 40MG ONE DAILY
     Dates: start: 20040818

REACTIONS (6)
  - ABDOMINAL DISCOMFORT [None]
  - BURNING SENSATION [None]
  - DRUG INEFFECTIVE [None]
  - OESOPHAGEAL DISCOMFORT [None]
  - OESOPHAGEAL DISORDER [None]
  - PHARMACEUTICAL PRODUCT COMPLAINT [None]
